FAERS Safety Report 6479281-9 (Version None)
Quarter: 2009Q4

REPORT INFORMATION
  Report Type: 
  Country: None (occurrence: None)
  Receive Date: 20091207
  Receipt Date: 20090313
  Transmission Date: 20100525
  Serious: No
  Sender: FDA-Public Use
  Company Number: US-AMGEN-KDL335029

PATIENT
  Sex: Female
  Weight: 68.1 kg

DRUGS (3)
  1. ENBREL [Suspect]
     Indication: PSORIASIS
     Route: 058
     Dates: start: 20090107
  2. UNSPECIFIED CONTRACEPTIVE [Concomitant]
  3. LORATADINE [Concomitant]

REACTIONS (2)
  - STRESS [None]
  - VULVOVAGINAL PRURITUS [None]
